FAERS Safety Report 5942533-2 (Version None)
Quarter: 2008Q4

REPORT INFORMATION
  Report Type: 
  Country: None (occurrence: None)
  Receive Date: 20081105
  Receipt Date: 20081028
  Transmission Date: 20090506
  Serious: Yes (Hospitalization)
  Sender: FDA-Public Use
  Company Number: IT-PFIZER INC-2008090995

PATIENT
  Sex: Female
  Weight: 68 kg

DRUGS (3)
  1. SU-011,248 [Suspect]
     Indication: BREAST CANCER
     Route: 048
     Dates: start: 20080327
  2. MAALOX [Concomitant]
     Route: 048
     Dates: start: 20080908
  3. RABEPRAZOLE SODIUM [Concomitant]
     Route: 048
     Dates: start: 20080930

REACTIONS (1)
  - INTESTINAL PERFORATION [None]
